FAERS Safety Report 17495880 (Version 5)
Quarter: 2020Q2

REPORT INFORMATION
  Report Type: Spontaneous
  Country: PL (occurrence: PL)
  Receive Date: 20200304
  Receipt Date: 20200619
  Transmission Date: 20200713
  Serious: Yes (Hospitalization, Other)
  Sender: FDA-Public Use
  Company Number: NVSC2020PL059826

PATIENT
  Age: 52 Year
  Sex: Female

DRUGS (5)
  1. DULOXETINE. [Interacting]
     Active Substance: DULOXETINE
     Indication: ANXIETY DISORDER
     Dosage: 30 MG, QD
     Route: 065
  2. METOCLOPRAMIDE. [Interacting]
     Active Substance: METOCLOPRAMIDE
     Indication: GASTROOESOPHAGEAL REFLUX DISEASE
     Dosage: 30 MG QD
     Route: 048
  3. LANSOPRAZOLE. [Interacting]
     Active Substance: LANSOPRAZOLE
     Dosage: 15 MILLIGRAM, QD
     Route: 065
  4. METOPROLOL. [Suspect]
     Active Substance: METOPROLOL
     Indication: SINUS TACHYCARDIA
     Dosage: 100 MG, QD,LONG-TERM THERAPY; CONTROLLED-RELEASE DOSE
     Route: 065
  5. LANSOPRAZOLE. [Interacting]
     Active Substance: LANSOPRAZOLE
     Indication: GASTROOESOPHAGEAL REFLUX DISEASE
     Dosage: 15 MG QD
     Route: 048

REACTIONS (11)
  - Reflux gastritis [Unknown]
  - Drug interaction [Unknown]
  - Dyspepsia [Unknown]
  - Presyncope [Unknown]
  - Sinus bradycardia [Unknown]
  - Off label use [Unknown]
  - Syncope [Unknown]
  - Loss of consciousness [Unknown]
  - Abdominal pain upper [Unknown]
  - Malaise [Unknown]
  - Bradycardia [Unknown]
